FAERS Safety Report 6115276-2 (Version None)
Quarter: 2009Q1

REPORT INFORMATION
  Report Type: 
  Country: None (occurrence: None)
  Receive Date: 20090313
  Receipt Date: 20090309
  Transmission Date: 20090719
  Serious: Yes (Hospitalization)
  Sender: FDA-Public Use
  Company Number: FR-BRISTOL-MYERS SQUIBB COMPANY-14541940

PATIENT
  Age: 82 Year
  Sex: Female

DRUGS (14)
  1. GLUCOPHAGE [Suspect]
     Indication: TYPE 2 DIABETES MELLITUS
     Route: 048
     Dates: end: 20081018
  2. ZESTRIL [Suspect]
     Indication: HYPERTENSION
     Route: 048
     Dates: end: 20081018
  3. LASIX [Suspect]
     Indication: HYPERTENSION
     Route: 048
     Dates: end: 20081018
  4. COLCHICINE [Suspect]
     Indication: GOUT
     Route: 048
     Dates: start: 20081004, end: 20081018
  5. BISOPROLOL [Concomitant]
  6. LEVOTHYROXINE SODIUM [Concomitant]
     Dosage: LEVOTHYROX 50
  7. ALPRAZOLAM [Concomitant]
  8. SIMVASTATIN [Concomitant]
  9. AMIODARONE HCL [Concomitant]
  10. ALLOPURINOL [Concomitant]
  11. PREVISCAN [Concomitant]
  12. DAFLON [Concomitant]
  13. TOPLEXIL [Concomitant]
     Dates: start: 20081004
  14. IXPRIM [Concomitant]
     Dates: start: 20081004

REACTIONS (3)
  - DIARRHOEA [None]
  - LACTIC ACIDOSIS [None]
  - RENAL FAILURE ACUTE [None]
